FAERS Safety Report 6748176-5 (Version None)
Quarter: 2010Q2

REPORT INFORMATION
  Report Type: 
  Country: None (occurrence: None)
  Receive Date: 20100531
  Receipt Date: 20100517
  Transmission Date: 20101027
  Serious: No
  Sender: FDA-Public Use
  Company Number: PHHY2009JP50318

PATIENT
  Sex: Female

DRUGS (2)
  1. TASIGNA [Suspect]
     Indication: CHRONIC MYELOID LEUKAEMIA
     Dosage: 800 MG DAILY
     Route: 048
     Dates: start: 20090406, end: 20100116
  2. MAGMITT [Concomitant]
     Indication: CONSTIPATION
     Dosage: 1.5 G
     Route: 048
     Dates: start: 20090307

REACTIONS (3)
  - ABORTION INDUCED [None]
  - DRUG EXPOSURE DURING PREGNANCY [None]
  - PREGNANCY [None]
